FAERS Safety Report 4295396-8 (Version None)
Quarter: 2004Q1

REPORT INFORMATION
  Report Type: 
  Country: None (occurrence: None)
  Receive Date: 20040216
  Receipt Date: 20030714
  Transmission Date: 20041129
  Serious: No
  Sender: FDA-Public Use
  Company Number: US-GLAXOSMITHKLINE-A0417164A

PATIENT
  Sex: Male

DRUGS (4)
  1. LAMICTAL [Suspect]
     Indication: EPILEPSY
     Dosage: 200MG THREE TIMES PER DAY
     Route: 048
  2. KEPPRA [Concomitant]
     Dosage: 3500MG PER DAY
     Route: 065
  3. PHENOBARBITAL TAB [Concomitant]
     Dosage: 90MG PER DAY
  4. NEURONTIN [Concomitant]
     Dosage: 600MG PER DAY
     Route: 065

REACTIONS (2)
  - DYSARTHRIA [None]
  - FEELING DRUNK [None]
